FAERS Safety Report 7334475-5 (Version None)
Quarter: 2011Q1

REPORT INFORMATION
  Report Type: 
  Country: None (occurrence: None)
  Receive Date: 20110307
  Receipt Date: 20110228
  Transmission Date: 20110831
  Serious: Yes (Life-Threatening, Hospitalization, Other)
  Sender: FDA-Public Use
  Company Number: CA-BRISTOL-MYERS SQUIBB COMPANY-15578800

PATIENT
  Age: 36 Year
  Sex: Female
  Weight: 83 kg

DRUGS (15)
  1. HYDROMORPHONE [Concomitant]
  2. PROCHLORPERAZINE [Concomitant]
     Dates: start: 20100511
  3. FENTANYL [Concomitant]
     Dates: start: 20100512
  4. FOLIC ACID [Concomitant]
     Dates: start: 20100504
  5. VITAMIN B-12 [Concomitant]
  6. COLACE [Concomitant]
  7. CISPLATIN [Suspect]
     Indication: NON-SMALL CELL LUNG CANCER
     Dosage: 10MAY-14JUN10=36DAYS,19JUL-26JUL10=8 DAYS,
     Route: 042
     Dates: start: 20100510, end: 20100826
  8. DEXAMETHASONE [Concomitant]
  9. LORAZEPAM [Concomitant]
     Dates: start: 20100507
  10. DAPOXETINE HYDROCHLORIDE [Concomitant]
     Indication: COUGH
  11. PRILOSEC [Concomitant]
     Dates: start: 20100616
  12. GRAVOL TAB [Concomitant]
     Dates: start: 20100728
  13. ETOPOSIDE [Suspect]
     Indication: NON-SMALL CELL LUNG CANCER
     Dosage: 10MAY-11JUN10=33DAYS,19JUL-23JUL10=5 DAYS,
     Route: 042
     Dates: start: 20100510, end: 20100826
  14. SENOKOT [Concomitant]
  15. ONDANSETRON [Concomitant]
     Dates: start: 20100728

REACTIONS (2)
  - PNEUMONIA [None]
  - BRONCHOPLEURAL FISTULA [None]
